FAERS Safety Report 8874734 (Version 1)
Quarter: 2012Q4

REPORT INFORMATION
  Report Type: 
  Country: US (occurrence: US)
  Receive Date: 20121023
  Receipt Date: 20121023
  Transmission Date: 20130627
  Serious: Yes (Other)
  Sender: FDA-Public Use
  Company Number: US-ROCHE-1135999

PATIENT
  Sex: Female

DRUGS (6)
  1. XELODA [Suspect]
     Indication: RECTAL CANCER
     Route: 065
  2. HERCEPTIN [Suspect]
     Indication: COLON CANCER
     Dosage: Loading Dose
     Route: 065
     Dates: start: 19981016
  3. HERCEPTIN [Suspect]
     Dosage: maintenance dose
     Route: 065
  4. CAMPTOSAR [Concomitant]
  5. INTERFERON ALFA [Concomitant]
  6. 5-FU [Concomitant]
     Route: 048

REACTIONS (8)
  - Toxicity to various agents [Unknown]
  - Dermatitis exfoliative [Unknown]
  - Flushing [Unknown]
  - Pain in extremity [Unknown]
  - Gait disturbance [Unknown]
  - Eye irritation [Recovered/Resolved]
  - Erythema [Unknown]
  - Swelling [Unknown]
